FAERS Safety Report 8852289 (Version 2)
Quarter: 2012Q4

REPORT INFORMATION
  Report Type: Report from Study
  Country: DE (occurrence: TR)
  Receive Date: 20121022
  Receipt Date: 20121026
  Transmission Date: 20130627
  Serious: Yes (Death)
  Sender: FDA-Public Use
  Company Number: DE-ACTELION-A-US2012-73030

PATIENT
  Age: 21 Month
  Sex: Female

DRUGS (1)
  1. VENTAVIS [Suspect]
     Indication: PULMONARY ARTERIAL HYPERTENSION
     Dosage: UNK UNK, od
     Route: 055
     Dates: start: 20120604, end: 20121005

REACTIONS (2)
  - Pneumonia [Fatal]
  - Nosocomial infection [Fatal]
